FAERS Safety Report 11021170 (Version 13)
Quarter: 2015Q4

REPORT INFORMATION
  Report Type: Report from Study
  Country: US (occurrence: US)
  Receive Date: 20150413
  Receipt Date: 20151023
  Transmission Date: 20160304
  Serious: Yes (Other)
  Sender: FDA-Public Use
  Company Number: US-MYLANLABS-2015M1007359

PATIENT

DRUGS (6)
  1. CLOZAPINE TABLETS, USP [Suspect]
     Active Substance: CLOZAPINE
     Dosage: 200 MG, HS
     Route: 048
     Dates: start: 201501, end: 20150327
  2. CLOZAPINE TABLETS, USP [Suspect]
     Active Substance: CLOZAPINE
     Dosage: 200 MG, HS
     Route: 048
     Dates: start: 20150331
  3. CLOZAPINE TABLETS, USP [Suspect]
     Active Substance: CLOZAPINE
     Dosage: 75 MG, QD
  4. KETOCONAZOLE. [Concomitant]
     Active Substance: KETOCONAZOLE
     Dosage: UNK
  5. KETOCONAZOLE. [Concomitant]
     Active Substance: KETOCONAZOLE
     Dosage: UNK
  6. CLOZAPINE TABLETS, USP [Suspect]
     Active Substance: CLOZAPINE
     Indication: SCHIZOPHRENIA
     Dosage: 50 MG, HS
     Route: 048
     Dates: start: 20150115

REACTIONS (3)
  - Drug ineffective [Recovered/Resolved]
  - Leukopenia [Recovered/Resolved]
  - Granulocytopenia [Not Recovered/Not Resolved]

NARRATIVE: CASE EVENT DATE: 20150115
